FAERS Safety Report 21527482 (Version 5)
Quarter: 2023Q1

REPORT INFORMATION
  Report Type: Report from Study
  Country: US (occurrence: US)
  Receive Date: 20221031
  Receipt Date: 20230325
  Transmission Date: 20230418
  Serious: Yes (Other)
  Sender: FDA-Public Use
  Company Number: US-NOVARTISTESTPH-NVSC2022US239632

PATIENT
  Age: 20 Year
  Sex: Female

DRUGS (2)
  1. KESIMPTA [Suspect]
     Active Substance: OFATUMUMAB
     Indication: Multiple sclerosis
     Dosage: 20 MG, QMO
     Route: 058
     Dates: start: 20221009
  2. KESIMPTA [Suspect]
     Active Substance: OFATUMUMAB
     Dosage: 20 GTT (DROP), QMO
     Route: 058

REACTIONS (9)
  - Hemihypoaesthesia [Recovering/Resolving]
  - Hemiparesis [Recovering/Resolving]
  - Tremor [Recovering/Resolving]
  - Oral herpes [Recovering/Resolving]
  - Paraesthesia [Recovering/Resolving]
  - Headache [Recovering/Resolving]
  - Chills [Recovering/Resolving]
  - Pyrexia [Recovering/Resolving]
  - Myalgia [Recovering/Resolving]

NARRATIVE: CASE EVENT DATE: 20221009
